FAERS Safety Report 9008815 (Version 1)
Quarter: 2013Q1

REPORT INFORMATION
  Report Type: Spontaneous
  Country: GB (occurrence: GB)
  Receive Date: 20130111
  Receipt Date: 20130111
  Transmission Date: 20140127
  Serious: Yes (Hospitalization)
  Sender: FDA-Public Use
  Company Number: GB-MYLANLABS-2013S1000291

PATIENT
  Age: 92 Year
  Sex: Female

DRUGS (5)
  1. AMOXICILLIN [Suspect]
     Indication: PRODUCT USED FOR UNKNOWN INDICATION
     Route: 048
     Dates: start: 20100610, end: 20100617
  2. CIPROFLOXACIN [Suspect]
     Indication: MORAXELLA INFECTION
     Route: 048
     Dates: start: 20110505, end: 20110510
  3. CIPROFLOXACIN [Suspect]
     Indication: MORAXELLA INFECTION
     Route: 042
     Dates: start: 20110505, end: 20110510
  4. OMEPRAZOLE [Suspect]
     Indication: PRODUCT USED FOR UNKNOWN INDICATION
  5. AMOXICILLIN\CLAVULANATE POTASSIUM [Suspect]
     Indication: PRODUCT USED FOR UNKNOWN INDICATION
     Route: 042
     Dates: start: 20110504, end: 20110504

REACTIONS (5)
  - Clostridium difficile colitis [Recovered/Resolved]
  - Pneumonia [Unknown]
  - Moraxella test positive [Unknown]
  - Norovirus test positive [Unknown]
  - Vomiting [Unknown]
